FAERS Safety Report 4364005-1 (Version None)
Quarter: 2004Q2

REPORT INFORMATION
  Report Type: 
  Country: None (occurrence: None)
  Receive Date: 20040514
  Receipt Date: 20040505
  Transmission Date: 20050107
  Serious: Yes (Other)
  Sender: FDA-Public Use
  Company Number: 200410267BCA

PATIENT
  Age: 69 Year
  Sex: Male

DRUGS (1)
  1. PLASBUMIN-5 [Suspect]
     Dosage: INTRAVENOUS
     Route: 042
     Dates: start: 19961128

REACTIONS (1)
  - HEPATITIS C POSITIVE [None]
